FAERS Safety Report 5736362-2 (Version None)
Quarter: 2008Q2

REPORT INFORMATION
  Report Type: 
  Country: None (occurrence: None)
  Receive Date: 20080509
  Receipt Date: 20080509
  Transmission Date: 20081010
  Serious: Yes (Disabling)
  Sender: FDA-Public Use
  Company Number: None

PATIENT
  Age: 85 Year
  Sex: Female

DRUGS (1)
  1. DIGITEK   0.125MG   AMIDE-BERTEK- [Suspect]
     Indication: CARDIAC DISORDER
     Dates: start: 20080115, end: 20080506

REACTIONS (3)
  - ASTHENIA [None]
  - BRADYCARDIA [None]
  - DYSPNOEA [None]
